FAERS Safety Report 8439480-3 (Version None)
Quarter: 2012Q2

REPORT INFORMATION
  Report Type: 
  Country: None (occurrence: None)
  Receive Date: 20120611
  Receipt Date: 20120611
  Transmission Date: 20120825
  Serious: Yes (Life-Threatening, Hospitalization)
  Sender: FDA-Public Use
  Company Number: None

PATIENT
  Age: 33 Year
  Sex: Female
  Weight: 76.2043 kg

DRUGS (5)
  1. LOVENOX [Concomitant]
  2. WARFARIN SODIUM [Concomitant]
  3. TOPAMAX [Suspect]
     Indication: MIGRAINE
     Dosage: TOPAMAX 125MG PER PAY PO
     Route: 048
     Dates: start: 20120217, end: 20120514
  4. NUVARING [Suspect]
     Indication: MENSTRUATION IRREGULAR
     Dosage: NUVARING KEPT ON FOR 3 WKS VAG
     Route: 067
     Dates: start: 20120405, end: 20120515
  5. COUMADIN [Concomitant]

REACTIONS (5)
  - PULMONARY EMBOLISM [None]
  - PALPITATIONS [None]
  - DEEP VEIN THROMBOSIS [None]
  - MYOCARDIAL INFARCTION [None]
  - RESPIRATORY DISORDER [None]
